FAERS Safety Report 5119765-9 (Version None)
Quarter: 2006Q4

REPORT INFORMATION
  Report Type: 
  Country: None (occurrence: None)
  Receive Date: 20061003
  Receipt Date: 20060928
  Transmission Date: 20070319
  Serious: Yes (Hospitalization)
  Sender: FDA-Public Use
  Company Number: US-JNJFOC-20060901817

PATIENT
  Age: 9 Decade
  Sex: Female

DRUGS (2)
  1. ULTRAM SR [Suspect]
     Route: 048
  2. ULTRAM SR [Suspect]
     Indication: PAIN IN EXTREMITY
     Route: 048

REACTIONS (4)
  - DEHYDRATION [None]
  - DIZZINESS [None]
  - DRUG ADMINISTRATION ERROR [None]
  - HEPATIC FUNCTION ABNORMAL [None]
